FAERS Safety Report 12963731 (Version 2)
Quarter: 2016Q4

REPORT INFORMATION
  Report Type: Report from Study
  Country: US (occurrence: US)
  Receive Date: 20161122
  Receipt Date: 20161205
  Transmission Date: 20170207
  Serious: Yes (Other)
  Sender: FDA-Public Use
  Company Number: PHEH2016US030184

PATIENT
  Sex: Female

DRUGS (1)
  1. GILENYA [Suspect]
     Active Substance: FINGOLIMOD HYDROCHLORIDE
     Indication: RELAPSING-REMITTING MULTIPLE SCLEROSIS
     Dosage: UNK UNK, QD
     Route: 048
     Dates: start: 20110201

REACTIONS (24)
  - Tremor [Recovering/Resolving]
  - Urinary tract infection [Unknown]
  - Hyperhidrosis [Unknown]
  - Nausea [Unknown]
  - Chest discomfort [Recovering/Resolving]
  - Gait disturbance [Unknown]
  - Depression [Unknown]
  - Headache [Unknown]
  - Temperature intolerance [Unknown]
  - Cognitive disorder [Unknown]
  - Muscle tightness [Unknown]
  - Paraesthesia [Unknown]
  - Pneumonia [Unknown]
  - Feeling cold [Unknown]
  - Pain in extremity [Unknown]
  - Limb discomfort [Unknown]
  - Asthenia [Unknown]
  - Balance disorder [Unknown]
  - Decreased appetite [Unknown]
  - Malaise [Unknown]
  - Dyspnoea [Unknown]
  - Fatigue [Unknown]
  - Memory impairment [Unknown]
  - Multiple sclerosis relapse [Unknown]
